FAERS Safety Report 5862667-0 (Version None)
Quarter: 2008Q3

REPORT INFORMATION
  Report Type: 
  Country: None (occurrence: None)
  Receive Date: 20080828
  Receipt Date: 20080818
  Transmission Date: 20090109
  Serious: Yes (Hospitalization)
  Sender: FDA-Public Use
  Company Number: FR-JNJFOC-20080804002

PATIENT
  Age: 67 Year
  Sex: Female

DRUGS (3)
  1. REMICADE [Suspect]
     Dosage: INFUSION RE-INITIATED, DATE UNKNOWN
     Route: 042
  2. REMICADE [Suspect]
     Dosage: INFUSION SEQUENCE NUMBER UNKNOWN
     Route: 042
  3. REMICADE [Suspect]
     Indication: CROHN'S DISEASE
     Dosage: SECOND INFUSION ADMINISTERED ON AN UNKNOWN DATE
     Route: 042

REACTIONS (6)
  - CHEST PAIN [None]
  - CHILLS [None]
  - DYSPNOEA [None]
  - INFUSION RELATED REACTION [None]
  - PYREXIA [None]
  - TREMOR [None]
